FAERS Safety Report 17477641 (Version 4)
Quarter: 2020Q2

REPORT INFORMATION
  Report Type: Spontaneous
  Country: JP (occurrence: JP)
  Receive Date: 20200228
  Receipt Date: 20200625
  Transmission Date: 20200713
  Serious: Yes (Death, Hospitalization, Other)
  Sender: FDA-Public Use
  Company Number: JP-009507513-2002JPN001725J

PATIENT
  Age: 75 Year
  Sex: Female

DRUGS (1)
  1. KEYTRUDA [Suspect]
     Active Substance: PEMBROLIZUMAB
     Indication: NON-SMALL CELL LUNG CANCER
     Dosage: 200 MILLIGRAM, Q3W
     Route: 041

REACTIONS (9)
  - Death [Fatal]
  - Systemic lupus erythematosus [Not Recovered/Not Resolved]
  - Hypothyroidism [Unknown]
  - Thrombosis [Unknown]
  - Nephrotic syndrome [Not Recovered/Not Resolved]
  - Antiphospholipid syndrome [Unknown]
  - Malignant neoplasm progression [Unknown]
  - Malignant pleural effusion [Not Recovered/Not Resolved]
  - Platelet count decreased [Not Recovered/Not Resolved]
